FAERS Safety Report 10606774 (Version 1)
Quarter: 2014Q4

REPORT INFORMATION
  Report Type: Spontaneous
  Country: JP (occurrence: JP)
  Receive Date: 20141125
  Receipt Date: 20141125
  Transmission Date: 20150529
  Serious: Yes (Death)
  Sender: FDA-Public Use
  Company Number: JP-MALLINCKRODT-T201404155

PATIENT
  Age: 57 Year
  Sex: Male
  Weight: 61 kg

DRUGS (12)
  1. ABSTRAL [Concomitant]
     Active Substance: FENTANYL CITRATE
     Dosage: 0.2 - 0.3 MG, PRN
     Route: 060
     Dates: start: 20140727
  2. NEXIUM [Concomitant]
     Active Substance: ESOMEPRAZOLE MAGNESIUM
     Dosage: 20 MG, UNK
     Route: 048
     Dates: start: 20130202, end: 20140215
  3. DEPAS [Concomitant]
     Active Substance: ETIZOLAM
     Dosage: 1 MG, UNK
     Route: 048
     Dates: start: 20140502, end: 20140915
  4. LYRICA [Concomitant]
     Active Substance: PREGABALIN
     Dosage: 75 MG, UNK
     Route: 048
     Dates: start: 20130204, end: 20140915
  5. PANTOSIN [Concomitant]
     Active Substance: PANTETHINE
     Dosage: 300 MG, UNK
     Route: 048
     Dates: start: 20140718, end: 20140915
  6. METHADONE [Suspect]
     Active Substance: METHADONE HYDROCHLORIDE
     Indication: CANCER PAIN
     Dosage: 10 MG, (30 MG DAILY DOSE)
     Route: 048
     Dates: start: 20140728, end: 20140915
  7. LOXONIN [Concomitant]
     Active Substance: LOXOPROFEN SODIUM
     Dosage: 180 MG, UNK
     Route: 048
     Dates: start: 20130307, end: 20140915
  8. FENTOS [Concomitant]
     Active Substance: FENTANYL
     Dosage: 8 MG, UNK
     Route: 062
     Dates: start: 20140703, end: 20140916
  9. MAGMITT [Concomitant]
     Active Substance: MAGNESIUM OXIDE
     Dosage: 1980 MG, UNK
     Route: 048
     Dates: start: 20140718, end: 20140915
  10. CALONAL [Concomitant]
     Active Substance: ACETAMINOPHEN
     Dosage: 2400 MG, UNK
     Route: 048
     Dates: start: 20140714, end: 20140915
  11. NAUZELIN [Concomitant]
     Active Substance: DOMPERIDONE
     Dosage: 10 MG, UNK
     Route: 048
     Dates: start: 20140731, end: 20140915
  12. TRYPTANOL                          /00002202/ [Concomitant]
     Active Substance: AMITRIPTYLINE
     Dosage: 10 MG, UNK
     Route: 048
     Dates: start: 20140731, end: 20140915

REACTIONS (1)
  - Peritonitis [Fatal]
